FAERS Safety Report 15947231 (Version 2)
Quarter: 2019Q1

REPORT INFORMATION
  Report Type: Report from Study
  Country: US (occurrence: US)
  Receive Date: 20190212
  Receipt Date: 20190217
  Transmission Date: 20190417
  Serious: Yes (Other)
  Sender: FDA-Public Use
  Company Number: PHEH2019US005755

PATIENT
  Sex: Male

DRUGS (1)
  1. ENTRESTO [Suspect]
     Active Substance: SACUBITRIL\VALSARTAN
     Indication: PRODUCT USED FOR UNKNOWN INDICATION
     Dosage: UNK
     Route: 048

REACTIONS (7)
  - Cardiac disorder [Unknown]
  - Anal incontinence [Unknown]
  - Arthralgia [Unknown]
  - Ear haemorrhage [Unknown]
  - Peripheral swelling [Unknown]
  - Gait disturbance [Unknown]
  - Flatulence [Unknown]
